FAERS Safety Report 8380685-8 (Version None)
Quarter: 2012Q2

REPORT INFORMATION
  Report Type: 
  Country: None (occurrence: None)
  Receive Date: 20120523
  Receipt Date: 20120511
  Transmission Date: 20120825
  Serious: Yes (Hospitalization, Other)
  Sender: FDA-Public Use
  Company Number: US-ROCHE-1065349

PATIENT

DRUGS (26)
  1. RANIBIZUMAB AND RANIBIZUMAB [Suspect]
     Dates: start: 20100928
  2. RANIBIZUMAB AND RANIBIZUMAB [Suspect]
     Dates: start: 20101130
  3. RANIBIZUMAB AND RANIBIZUMAB [Suspect]
     Dates: start: 20110426
  4. SIMVASTATIN [Concomitant]
     Indication: HYPERCHOLESTEROLAEMIA
     Dates: start: 19961001, end: 20111209
  5. METOPROLOL [Concomitant]
     Indication: HYPERTENSION
     Dates: start: 20111223
  6. RANIBIZUMAB AND RANIBIZUMAB [Suspect]
     Dates: start: 20110125
  7. OMEPRAZOLE [Concomitant]
     Indication: DYSPEPSIA
  8. RANIBIZUMAB AND RANIBIZUMAB [Suspect]
     Dates: start: 20100803
  9. RANIBIZUMAB AND RANIBIZUMAB [Suspect]
     Dates: start: 20101026
  10. ASPIRIN [Concomitant]
     Indication: CORONARY ARTERY DISEASE
     Dates: start: 20030101
  11. OXYBUTYNIN [Concomitant]
     Indication: INCONTINENCE
     Dates: start: 20040201
  12. MULTIVITAMIN [Concomitant]
     Indication: MEDICAL DIET
     Dates: start: 19970702
  13. LISINOPRIL [Concomitant]
     Indication: HYPERTENSION
     Dates: start: 20111223
  14. NITROGLYCERIN [Concomitant]
     Indication: ANGINA PECTORIS
     Dates: start: 19930101
  15. INSULINE [Concomitant]
     Indication: DIABETES MELLITUS
     Dates: start: 20111209, end: 20120229
  16. RANIBIZUMAB AND RANIBIZUMAB [Suspect]
     Dates: start: 20100831
  17. RANIBIZUMAB AND RANIBIZUMAB [Suspect]
     Dates: start: 20110628
  18. CIPROFLOXACIN HCL [Concomitant]
     Indication: URINARY TRACT INFECTION
     Dates: start: 20110528, end: 20110621
  19. LEVOTHYROXINE SODIUM [Concomitant]
     Indication: HYPOTHYROIDISM
     Dates: start: 20000101
  20. ATENOLOL [Concomitant]
     Indication: HYPERTENSION
     Dates: start: 19800101, end: 20120101
  21. RANIBIZUMAB AND RANIBIZUMAB [Suspect]
     Indication: MACULAR DEGENERATION
     Route: 050
     Dates: start: 20100601
  22. RANIBIZUMAB AND RANIBIZUMAB [Suspect]
     Dates: start: 20110301
  23. NORVASC [Concomitant]
     Indication: HYPERTENSION
     Dates: start: 19930101
  24. BENICAR [Concomitant]
     Indication: HYPERTENSION
     Dates: start: 20080101, end: 20120101
  25. PRAVASTATIN [Concomitant]
     Indication: HYPERCHOLESTEROLAEMIA
     Dates: start: 20111209
  26. JANUVIA [Concomitant]
     Indication: DIABETES MELLITUS
     Dates: start: 20090101

REACTIONS (2)
  - CEREBROVASCULAR ACCIDENT [None]
  - HIP FRACTURE [None]
